FAERS Safety Report 5662575-4 (Version None)
Quarter: 2008Q1

REPORT INFORMATION
  Report Type: 
  Country: None (occurrence: None)
  Receive Date: 20080310
  Receipt Date: 20080310
  Transmission Date: 20080703
  Serious: Yes (Life-Threatening, Other)
  Sender: FDA-Public Use
  Company Number: None

PATIENT
  Age: 31 Year
  Sex: Female
  Weight: 81.6475 kg

DRUGS (1)
  1. CHANTIX [Suspect]
     Indication: SMOKING CESSATION THERAPY
     Dosage: 1 PIL BID PO
     Route: 048
     Dates: start: 20080123, end: 20080301

REACTIONS (6)
  - ABNORMAL DREAMS [None]
  - ANGER [None]
  - DEPRESSED MOOD [None]
  - INSOMNIA [None]
  - POISONING [None]
  - THINKING ABNORMAL [None]
